FAERS Safety Report 5262399-6 (Version None)
Quarter: 2007Q1

REPORT INFORMATION
  Report Type: 
  Country: None (occurrence: None)
  Receive Date: 20070309
  Receipt Date: 20070309
  Transmission Date: 20070707
  Serious: Yes (Other)
  Sender: FDA-Public Use
  Company Number: None

PATIENT
  Sex: Female
  Weight: 63.5036 kg

DRUGS (4)
  1. ZOCOR [Suspect]
  2. ZOCOR [Concomitant]
  3. LIPITOR [Concomitant]
  4. CRESTOR [Concomitant]

REACTIONS (3)
  - MUSCLE FATIGUE [None]
  - OEDEMA PERIPHERAL [None]
  - SECRETION DISCHARGE [None]
